FAERS Safety Report 18253017 (Version 1)
Quarter: 2020Q3

REPORT INFORMATION
  Report Type: Spontaneous
  Country: US (occurrence: US)
  Receive Date: 20200910
  Receipt Date: 20200910
  Transmission Date: 20201103
  Serious: No
  Sender: FDA-Public Use
  Company Number: US-ADAREPHARM-2020-US-000001

PATIENT
  Age: 62 Year
  Sex: Female

DRUGS (4)
  1. ZYDUS ATENOLOL 50 MG TABLETS [Suspect]
     Active Substance: ATENOLOL
     Indication: TACHYCARDIA
     Route: 048
     Dates: start: 20190624, end: 201907
  2. PROPRANOLOL [Suspect]
     Active Substance: PROPRANOLOL HYDROCHLORIDE
     Indication: TACHYCARDIA
     Dates: start: 20190622, end: 20190622
  3. PREDNISONE. [Concomitant]
     Active Substance: PREDNISONE
     Dates: start: 20190718
  4. ZITHROMAX [Concomitant]
     Active Substance: AZITHROMYCIN DIHYDRATE
     Dates: start: 20190718

REACTIONS (4)
  - Rash [Not Recovered/Not Resolved]
  - Product use in unapproved indication [Recovered/Resolved]
  - Dizziness [Recovered/Resolved]
  - Tachycardia [None]

NARRATIVE: CASE EVENT DATE: 20190622
